FAERS Safety Report 18314847 (Version 1)
Quarter: 2020Q3

REPORT INFORMATION
  Report Type: Spontaneous
  Country: FR (occurrence: FR)
  Receive Date: 20200925
  Receipt Date: 20200925
  Transmission Date: 20201103
  Serious: Yes (Hospitalization, Other)
  Sender: FDA-Public Use
  Company Number: FR-ELI_LILLY_AND_COMPANY-FR202007012913

PATIENT
  Age: 74 Year
  Sex: Male

DRUGS (3)
  1. CLOMIPRAMINE [Interacting]
     Active Substance: CLOMIPRAMINE
     Indication: OBSESSIVE-COMPULSIVE DISORDER
     Dosage: 150 MG, UNKNOWN
     Route: 002
     Dates: start: 2016, end: 2016
  2. OLANZAPINE. [Suspect]
     Active Substance: OLANZAPINE
     Indication: OBSESSIVE-COMPULSIVE DISORDER
     Dosage: 7.5 MG, UNKNOWN
     Route: 065
     Dates: start: 2016
  3. CLOMIPRAMINE [Interacting]
     Active Substance: CLOMIPRAMINE
     Indication: DEPRESSION

REACTIONS (11)
  - Drug interaction [Recovered/Resolved]
  - Dysuria [Recovering/Resolving]
  - Cognitive disorder [Recovering/Resolving]
  - Hallucination, visual [Recovered/Resolved]
  - Dysphagia [Recovering/Resolving]
  - Dyspraxia [Recovering/Resolving]
  - Orthostatic hypotension [Recovering/Resolving]
  - Drug hypersensitivity [Recovering/Resolving]
  - Confusional state [Recovering/Resolving]
  - Extrapyramidal disorder [Recovering/Resolving]
  - Sleep disorder [Unknown]

NARRATIVE: CASE EVENT DATE: 2016
